FAERS Safety Report 12902010 (Version 4)
Quarter: 2019Q2

REPORT INFORMATION
  Report Type: Report from Study
  Country: CA (occurrence: CA)
  Receive Date: 20161102
  Receipt Date: 20190402
  Transmission Date: 20190711
  Serious: Yes (Other)
  Sender: FDA-Public Use
  Company Number: CA-ROCHE-1393520

PATIENT
  Age: 28 Year
  Sex: Female
  Weight: 120.31 kg

DRUGS (14)
  1. LEVOFLOXACIN. [Concomitant]
     Active Substance: LEVOFLOXACIN
  2. SALINEX NASAL SPRAY [Concomitant]
  3. TYLENOL [Concomitant]
     Active Substance: ACETAMINOPHEN
     Indication: PREMEDICATION
     Route: 048
     Dates: start: 20140429
  4. SEPTRA [Concomitant]
     Active Substance: SULFAMETHOXAZOLE\TRIMETHOPRIM
  5. METFORMIN [Concomitant]
     Active Substance: METFORMIN HYDROCHLORIDE
  6. NEXIUM [Concomitant]
     Active Substance: ESOMEPRAZOLE MAGNESIUM
  7. PREDNISONE. [Suspect]
     Active Substance: PREDNISONE
     Indication: PRODUCT USED FOR UNKNOWN INDICATION
     Dosage: UNKNOWN DOSE
     Route: 065
  8. CIPRALEX [Concomitant]
     Active Substance: ESCITALOPRAM OXALATE
     Indication: ATTENTION DEFICIT/HYPERACTIVITY DISORDER
  9. VICTOZA [Concomitant]
     Active Substance: LIRAGLUTIDE
  10. RITUXAN [Suspect]
     Active Substance: RITUXIMAB
     Indication: GRANULOMATOSIS WITH POLYANGIITIS
     Dosage: DAY 1 AND DAY 15?MOST RECENT DOSE OF RITUXIMAB: 16/MAY/2016
     Route: 042
     Dates: start: 20140429
  11. FOLIC ACID. [Concomitant]
     Active Substance: FOLIC ACID
  12. VENTOLIN [Concomitant]
     Active Substance: ALBUTEROL SULFATE
  13. SOLU-MEDROL [Concomitant]
     Active Substance: METHYLPREDNISOLONE SODIUM SUCCINATE
     Indication: PREMEDICATION
     Route: 042
     Dates: start: 20140429
  14. MELOXICAM. [Concomitant]
     Active Substance: MELOXICAM

REACTIONS (20)
  - Back pain [Not Recovered/Not Resolved]
  - Contusion [Not Recovered/Not Resolved]
  - Somnolence [Unknown]
  - Productive cough [Not Recovered/Not Resolved]
  - Nasal congestion [Recovered/Resolved]
  - Infusion related reaction [Recovered/Resolved]
  - Headache [Recovered/Resolved]
  - Blood pressure fluctuation [Unknown]
  - Rhinorrhoea [Recovered/Resolved]
  - Infusion related reaction [Unknown]
  - Hyperhidrosis [Unknown]
  - Weight increased [Unknown]
  - Rash [Unknown]
  - Lower respiratory tract infection [Recovered/Resolved]
  - Blood glucose increased [Unknown]
  - Oxygen saturation decreased [Unknown]
  - Fatigue [Unknown]
  - Musculoskeletal stiffness [Not Recovered/Not Resolved]
  - Heart rate increased [Unknown]
  - Oropharyngeal pain [Not Recovered/Not Resolved]

NARRATIVE: CASE EVENT DATE: 20140429
